FAERS Safety Report 8509944-2 (Version None)
Quarter: 2012Q3

REPORT INFORMATION
  Report Type: 
  Country: None (occurrence: None)
  Receive Date: 20120713
  Receipt Date: 20120705
  Transmission Date: 20120928
  Serious: Yes (Other)
  Sender: FDA-Public Use
  Company Number: JP-VERTEX PHARMACEUTICALS INC.-AE-2012-001521

PATIENT
  Age: 55 Year
  Sex: Male

DRUGS (17)
  1. PEG-INTRON [Concomitant]
     Indication: HEPATITIS C
     Route: 058
     Dates: start: 20120111, end: 20120118
  2. XYZAL [Concomitant]
     Route: 048
     Dates: start: 20120120
  3. KETOBUN [Concomitant]
     Route: 048
  4. REBETOL [Concomitant]
     Indication: HEPATITIS C
     Route: 048
     Dates: start: 20120111, end: 20120125
  5. DEPAS [Concomitant]
     Route: 048
  6. XYZAL [Concomitant]
     Route: 048
     Dates: start: 20120120
  7. LOSARTAN POTASSIUM [Concomitant]
     Route: 048
  8. PEG-INTRON [Concomitant]
     Route: 058
     Dates: start: 20120612, end: 20120612
  9. REBETOL [Concomitant]
     Route: 048
     Dates: start: 20120612, end: 20120625
  10. PEG-INTRON [Concomitant]
     Route: 058
     Dates: start: 20120125, end: 20120125
  11. LIVALO [Concomitant]
     Route: 048
  12. ALLOPURINOL [Concomitant]
     Route: 048
     Dates: start: 20120127
  13. TELAVIC (TELAPREVIR) [Suspect]
     Indication: HEPATITIS C
     Route: 048
     Dates: start: 20120111, end: 20120125
  14. SELBEX [Concomitant]
     Route: 048
     Dates: start: 20120120
  15. JANUVIA [Concomitant]
     Route: 048
  16. URSO 250 [Concomitant]
     Route: 048
  17. AMOBAN [Concomitant]
     Route: 048

REACTIONS (5)
  - PYREXIA [None]
  - LEUKOPENIA [None]
  - NEUTROPHIL COUNT DECREASED [None]
  - NEUTROPENIA [None]
  - THROMBOCYTOPENIA [None]
